FAERS Safety Report 5897626-5 (Version None)
Quarter: 2008Q3

REPORT INFORMATION
  Report Type: 
  Country: None (occurrence: None)
  Receive Date: 20080925
  Receipt Date: 20080916
  Transmission Date: 20090109
  Serious: Yes (Hospitalization)
  Sender: FDA-Public Use
  Company Number: US-AMGEN-US286741

PATIENT
  Sex: Female
  Weight: 54.9 kg

DRUGS (4)
  1. ROMIPLOSTIM [Suspect]
     Indication: IDIOPATHIC THROMBOCYTOPENIC PURPURA
     Route: 058
     Dates: start: 20071108, end: 20080605
  2. ORAL CONTRACEPTIVE NOS [Concomitant]
     Route: 048
  3. CYMBALTA [Concomitant]
     Route: 048
  4. SYNTHROID [Concomitant]
     Route: 048

REACTIONS (3)
  - ECCHYMOSIS [None]
  - PETECHIAE [None]
  - PURPURA [None]
